FAERS Safety Report 20144446 (Version 1)
Quarter: 2021Q4

REPORT INFORMATION
  Report Type: Spontaneous
  Country: US (occurrence: US)
  Receive Date: 20211203
  Receipt Date: 20211203
  Transmission Date: 20220303
  Serious: No
  Sender: FDA-Public Use
  Company Number: US-BEH-2021139060

PATIENT
  Age: 70 Year
  Sex: Male
  Weight: 78.75 kg

DRUGS (1)
  1. PRIVIGEN [Suspect]
     Active Substance: HUMAN IMMUNOGLOBULIN G
     Indication: Myasthenia gravis
     Dosage: 85 GRAM, QMT
     Route: 041

REACTIONS (3)
  - Urticaria [Unknown]
  - Rash [Unknown]
  - Rash [Unknown]
